FAERS Safety Report 6318210-5 (Version None)
Quarter: 2009Q3

REPORT INFORMATION
  Report Type: 
  Country: None (occurrence: None)
  Receive Date: 20090821
  Receipt Date: 20090812
  Transmission Date: 20100115
  Serious: Yes (Life-Threatening, Hospitalization)
  Sender: FDA-Public Use
  Company Number: B0589499A

PATIENT
  Sex: Female

DRUGS (2)
  1. SEROXAT [Suspect]
     Indication: ADJUSTMENT DISORDER
     Dosage: 20MG PER DAY
     Route: 048
     Dates: start: 20040719
  2. HELEX [Suspect]
     Indication: ANXIETY DISORDER
     Dosage: 250MCG PER DAY
     Route: 048
     Dates: start: 20030912

REACTIONS (2)
  - DRUG TOXICITY [None]
  - SUICIDE ATTEMPT [None]
